FAERS Safety Report 5621936-X (Version None)
Quarter: 2008Q1

REPORT INFORMATION
  Report Type: 
  Country: None (occurrence: None)
  Receive Date: 20080211
  Receipt Date: 20080130
  Transmission Date: 20080703
  Serious: Yes (Congenital Anomaly)
  Sender: FDA-Public Use
  Company Number: A0680191A

PATIENT
  Sex: Female

DRUGS (2)
  1. PAXIL [Suspect]
     Indication: DEPRESSION
     Dosage: 20MG PER DAY
     Dates: start: 20010518, end: 20020528
  2. PRENATAL VITAMINS [Concomitant]

REACTIONS (6)
  - CARDIAC DISORDER [None]
  - CARDIAC MURMUR [None]
  - DRUG EXPOSURE DURING PREGNANCY [None]
  - GALLBLADDER DISORDER [None]
  - PERSISTENT FOETAL CIRCULATION [None]
  - VENTRICULAR SEPTAL DEFECT [None]
